FAERS Safety Report 9475157 (Version 1)
Quarter: 2013Q3

REPORT INFORMATION
  Report Type: Spontaneous
  Country: JP (occurrence: JP)
  Receive Date: 20130824
  Receipt Date: 20130824
  Transmission Date: 20140515
  Serious: Yes (Other)
  Sender: FDA-Public Use
  Company Number: PHHY2013JP089133

PATIENT
  Age: 67 Year
  Sex: Male

DRUGS (4)
  1. CICLOSPORIN [Suspect]
     Indication: PSORIASIS
     Dosage: 150 MG, UNK
     Route: 048
  2. USTEKINUMAB [Suspect]
     Indication: PSORIASIS
     Dosage: 45 MG, UNK
     Dates: start: 201106
  3. ETRETINATE [Concomitant]
     Indication: PSORIASIS
     Dosage: 10 MG, UNK
  4. NSAID^S [Concomitant]

REACTIONS (8)
  - Eosinophilic pneumonia [Recovered/Resolved]
  - Cough [Recovered/Resolved]
  - Pyrexia [Recovered/Resolved]
  - Lung infiltration [Recovered/Resolved]
  - Pleural effusion [Recovered/Resolved]
  - Pneumonia mycoplasmal [Recovered/Resolved]
  - Psoriasis [Unknown]
  - Dyspnoea [Recovered/Resolved]
